FAERS Safety Report 5883914-5 (Version None)
Quarter: 2008Q3

REPORT INFORMATION
  Report Type: 
  Country: None (occurrence: None)
  Receive Date: 20080915
  Receipt Date: 20080905
  Transmission Date: 20090109
  Serious: Yes (Death, Disabling)
  Sender: FDA-Public Use
  Company Number: B0529783A

PATIENT
  Age: 2 Month
  Sex: Female
  Weight: 0.5 kg

DRUGS (4)
  1. COMBIVIR [Suspect]
     Indication: HIV INFECTION
     Dates: start: 20070921, end: 20071020
  2. LOPINAVIR AND RITONAVIR [Suspect]
     Indication: HIV INFECTION
  3. MEGLUMINE SODIUM AMIDOTRIZOATE [Concomitant]
  4. ZIDOVUDINE [Concomitant]
     Route: 065

REACTIONS (18)
  - ABDOMINAL DISTENSION [None]
  - BONE DENSITY DECREASED [None]
  - CARDIAC FAILURE [None]
  - DRUG EXPOSURE DURING PREGNANCY [None]
  - FOETAL HEART RATE DECELERATION [None]
  - HUMERUS FRACTURE [None]
  - HYPOPHOSPHATAEMIA [None]
  - INTESTINAL DILATATION [None]
  - LUNG DISORDER [None]
  - MECONIUM PLUG SYNDROME [None]
  - OSTEOMALACIA [None]
  - PULMONARY HYPERTENSION [None]
  - RESPIRATORY DISORDER [None]
  - RESPIRATORY DISTRESS [None]
  - RESPIRATORY FAILURE [None]
  - RIB DEFORMITY [None]
  - RICKETS [None]
  - SMALL FOR DATES BABY [None]
